FAERS Safety Report 20251991 (Version 2)
Quarter: 2022Q4

REPORT INFORMATION
  Report Type: Report from Study
  Country: US (occurrence: US)
  Receive Date: 20211229
  Receipt Date: 20221228
  Transmission Date: 20230113
  Serious: Yes (Other)
  Sender: FDA-Public Use
  Company Number: US-CLOVIS ONCOLOGY-CLO-2021-000731

PATIENT
  Sex: Female

DRUGS (4)
  1. RUBRACA [Suspect]
     Active Substance: RUCAPARIB CAMSYLATE
     Indication: Ovarian cancer
     Dosage: 250 MILLIGRAM, QD
     Route: 048
     Dates: start: 202012
  2. RUBRACA [Suspect]
     Active Substance: RUCAPARIB CAMSYLATE
     Dosage: SEVERAL DOSE REDUCTIONS
     Route: 048
  3. RUBRACA [Suspect]
     Active Substance: RUCAPARIB CAMSYLATE
     Dosage: 500 MILLIGRAM, BID
     Route: 048
     Dates: start: 20210720
  4. RUBRACA [Suspect]
     Active Substance: RUCAPARIB CAMSYLATE
     Dosage: 250 MILLIGRAM EVERY OTHER DAY
     Route: 048
     Dates: start: 202110

REACTIONS (4)
  - Thrombocytopenia [Not Recovered/Not Resolved]
  - Alopecia [Unknown]
  - Gait disturbance [Unknown]
  - Dyspnoea [Not Recovered/Not Resolved]
